FAERS Safety Report 4369665-7 (Version None)
Quarter: 2004Q2

REPORT INFORMATION
  Report Type: 
  Country: None (occurrence: None)
  Receive Date: 20040526
  Receipt Date: 20040316
  Transmission Date: 20050107
  Serious: Yes (Hospitalization)
  Sender: FDA-Public Use
  Company Number: USA040362257

PATIENT
  Age: 33 Year
  Sex: Male
  Weight: 91 kg

DRUGS (3)
  1. ZYPREXA [Suspect]
     Indication: BIPOLAR DISORDER
  2. LITHIUM CARBONATE [Concomitant]
  3. DEPAKOTE [Concomitant]

REACTIONS (2)
  - DIABETIC KETOACIDOSIS [None]
  - HYPEROSMOLAR STATE [None]
